FAERS Safety Report 20964429 (Version 1)
Quarter: 2022Q2

REPORT INFORMATION
  Report Type: Spontaneous
  Country: NO (occurrence: None)
  Receive Date: 20220615
  Receipt Date: 20220615
  Transmission Date: 20220721
  Serious: Yes (Hospitalization)
  Sender: FDA-Public Use
  Company Number: NO-Eisai Medical Research-EC-2022-115286

PATIENT
  Age: 23 Year
  Sex: Female
  Weight: 89 kg

DRUGS (1)
  1. FYCOMPA [Suspect]
     Active Substance: PERAMPANEL
     Indication: Epilepsy
     Route: 048
     Dates: start: 20190329, end: 2019

REACTIONS (6)
  - Communication disorder [Recovered/Resolved]
  - Automatism [Recovered/Resolved]
  - Crying [Recovered/Resolved]
  - Somnolence [Recovered/Resolved]
  - Abnormal behaviour [Recovered/Resolved]
  - Agitation [Recovered/Resolved]

NARRATIVE: CASE EVENT DATE: 20190330
